FAERS Safety Report 13506745 (Version 5)
Quarter: 2017Q3

REPORT INFORMATION
  Report Type: Spontaneous
  Country: US (occurrence: US)
  Receive Date: 20170502
  Receipt Date: 20170911
  Transmission Date: 20171127
  Serious: Yes (Hospitalization, Other)
  Sender: FDA-Public Use
  Company Number: US-BAUSCH-BL-2017-008445

PATIENT
  Age: 70 Year
  Sex: Female

DRUGS (3)
  1. RELISTOR [Suspect]
     Active Substance: METHYLNALTREXONE BROMIDE
     Indication: GROIN PAIN
  2. RELISTOR [Suspect]
     Active Substance: METHYLNALTREXONE BROMIDE
     Indication: CONSTIPATION
     Dosage: ONE DOSE OF RELISTOR (TOOK ONE SHOT)
     Route: 065
     Dates: start: 20170420, end: 20170420
  3. RELISTOR [Suspect]
     Active Substance: METHYLNALTREXONE BROMIDE
     Indication: ABDOMINAL PAIN LOWER

REACTIONS (12)
  - Hip arthroplasty [Unknown]
  - Tremor [Unknown]
  - Dyspnoea [Recovered/Resolved]
  - Haematochezia [Recovered/Resolved]
  - Chest discomfort [Not Recovered/Not Resolved]
  - Abdominal pain [Recovered/Resolved]
  - Chills [Unknown]
  - Peripheral swelling [Recovering/Resolving]
  - Abdominal distension [Not Recovered/Not Resolved]
  - Blood glucose increased [Not Recovered/Not Resolved]
  - Aortic aneurysm rupture [Not Recovered/Not Resolved]
  - Cold sweat [Recovered/Resolved]

NARRATIVE: CASE EVENT DATE: 2017
